FAERS Safety Report 9439026 (Version 4)
Quarter: 2013Q4

REPORT INFORMATION
  Report Type: Report from Study
  Country: ES (occurrence: ES)
  Receive Date: 20130802
  Receipt Date: 20131014
  Transmission Date: 20140711
  Serious: Yes (Hospitalization)
  Sender: FDA-Public Use
  Company Number: PHHO2013ES006824

PATIENT
  Sex: 0

DRUGS (13)
  1. STI571 [Suspect]
     Indication: GASTROINTESTINAL STROMAL TUMOUR
     Dosage: 400 MG, QD
     Route: 048
     Dates: start: 20130430
  2. STI571 [Suspect]
     Dosage: 400 MG, QD
     Route: 048
     Dates: start: 20130613, end: 20130729
  3. BYL719 [Suspect]
     Indication: GASTROINTESTINAL STROMAL TUMOUR
     Dosage: 200 MG, QD
     Route: 048
     Dates: start: 20130507, end: 20130521
  4. BYL719 [Suspect]
     Dosage: UNK
     Dates: start: 20130531
  5. BYL719 [Suspect]
     Dosage: 100 MG, QD
     Route: 048
     Dates: start: 20130613, end: 20130729
  6. TRAMADOL [Suspect]
     Indication: PAIN
     Dosage: 50 MG, Q8H
     Dates: start: 20130725, end: 20130730
  7. HYDROCHLOROTHIAZIDE, LOSARTAN [Suspect]
     Indication: HYPERTENSION
     Dosage: 1 DF (50/12.5 MG), QD
     Route: 048
  8. ENANTYUM [Suspect]
     Indication: PAIN
     Dosage: 25 MG, DEMAND
     Dates: start: 20130725, end: 20130729
  9. NSAID^S [Suspect]
  10. PREDNISONE [Suspect]
     Dosage: UNK
  11. DEXAMETHASONE [Suspect]
  12. FOLIDOCE [Concomitant]
     Indication: ANAEMIA PROPHYLAXIS
     Dosage: 1 DF (400 UG / 2 UG), QD
     Route: 048
     Dates: start: 201006
  13. FUROSEMIDE [Concomitant]
     Indication: FLUID RETENTION
     Dosage: 400 MG, OCCASIONALLY
     Dates: start: 20121210

REACTIONS (6)
  - Renal impairment [Recovered/Resolved]
  - Hyperbilirubinaemia [Recovered/Resolved]
  - Decreased appetite [Not Recovered/Not Resolved]
  - Transaminases increased [Recovered/Resolved]
  - Intestinal haemorrhage [Recovered/Resolved]
  - Hyperuricaemia [Recovered/Resolved]
